FAERS Safety Report 7867319 (Version 3)
Quarter: 2016Q1

REPORT INFORMATION
  Report Type: Spontaneous
  Country: IT (occurrence: IT)
  Receive Date: 20110323
  Receipt Date: 20160217
  Transmission Date: 20160526
  Serious: Yes (Other)
  Sender: FDA-Public Use
  Company Number: IT-TEVA-271940ISR

PATIENT
  Age: 22 Year
  Sex: Male

DRUGS (10)
  1. INTERFERON ALFA NOS [Suspect]
     Active Substance: INTERFERON ALFA-2A OR INTERFERON ALFA-2B
     Indication: BEHCET^S SYNDROME
     Dosage: 3 TO 4.5MU
     Route: 065
  2. MYCOPHENOLATE MOFETIL. [Suspect]
     Active Substance: MYCOPHENOLATE MOFETIL
     Indication: BEHCET^S SYNDROME
     Route: 065
  3. PREDNISONE. [Suspect]
     Active Substance: PREDNISONE
     Route: 065
  4. CICLOSPORIN [Suspect]
     Active Substance: CYCLOSPORINE
     Indication: BEHCET^S SYNDROME
     Dosage: 5 MG/KG DAILY;
     Route: 065
     Dates: end: 201002
  5. METHOTREXATE [Suspect]
     Active Substance: METHOTREXATE
     Indication: BEHCET^S SYNDROME
     Route: 065
  6. PREDNISONE. [Suspect]
     Active Substance: PREDNISONE
     Indication: BEHCET^S SYNDROME
     Dosage: } 20 MG
     Route: 065
  7. CICLOSPORIN [Suspect]
     Active Substance: CYCLOSPORINE
     Route: 065
     Dates: start: 200107, end: 200201
  8. INFLIXIMAB [Suspect]
     Active Substance: INFLIXIMAB
     Indication: BEHCET^S SYNDROME
     Route: 065
  9. AZATHIOPRINE. [Suspect]
     Active Substance: AZATHIOPRINE
     Indication: BEHCET^S SYNDROME
     Dosage: 1.5 MG/KG DAILY;
     Route: 065
  10. CHLORAMBUCIL [Suspect]
     Active Substance: CHLORAMBUCIL
     Indication: BEHCET^S SYNDROME
     Route: 065

REACTIONS (14)
  - Leukopenia [Unknown]
  - Pulmonary tuberculosis [Unknown]
  - Depression [Unknown]
  - Suicide attempt [Unknown]
  - Osteoporosis [Unknown]
  - Nephrolithiasis [Unknown]
  - Transaminases increased [Unknown]
  - Glaucoma [Unknown]
  - Nephropathy toxic [Unknown]
  - Behcet^s syndrome [Recovered/Resolved]
  - Cataract [Unknown]
  - Renal impairment [Unknown]
  - Pneumonia [Unknown]
  - Legionella infection [Unknown]
